FAERS Safety Report 15931723 (Version 1)
Quarter: 2019Q1

REPORT INFORMATION
  Report Type: Spontaneous
  Country: US (occurrence: US)
  Receive Date: 20190117
  Receipt Date: 20190117
  Transmission Date: 20190417
  Serious: Yes (Death)
  Sender: FDA-Public Use
  Company Number: None

PATIENT
  Age: 81 Year

DRUGS (2)
  1. CIPROFLOXACIN. [Suspect]
     Active Substance: CIPROFLOXACIN
     Indication: PAIN IN EXTREMITY
     Route: 048
     Dates: start: 20181119, end: 20181122
  2. CIPROFLOXACIN. [Suspect]
     Active Substance: CIPROFLOXACIN
     Indication: IMPAIRED HEALING
     Route: 048
     Dates: start: 20181119, end: 20181122

REACTIONS (3)
  - Feeling abnormal [None]
  - Malaise [None]
  - Blood pressure decreased [None]
